FAERS Safety Report 6110633-2 (Version None)
Quarter: 2009Q1

REPORT INFORMATION
  Report Type: 
  Country: None (occurrence: None)
  Receive Date: 20090310
  Receipt Date: 20090304
  Transmission Date: 20090719
  Serious: Yes (Death, Life-Threatening)
  Sender: FDA-Public Use
  Company Number: JP-ABBOTT-09P-087-0501070-00

PATIENT
  Age: 80 Year
  Sex: Male
  Weight: 68 kg

DRUGS (16)
  1. KLARICID [Suspect]
     Indication: PNEUMONIA LEGIONELLA
     Route: 048
     Dates: start: 20080908, end: 20080911
  2. RIFAMPICIN [Concomitant]
     Indication: PNEUMONIA LEGIONELLA
     Dosage: 450 MG
     Route: 048
     Dates: start: 20080908, end: 20080911
  3. CIPROXAN [Concomitant]
     Indication: PNEUMONIA LEGIONELLA
     Dosage: 600 MG
     Route: 042
     Dates: start: 20080908, end: 20080911
  4. SOL MEDROL [Concomitant]
     Indication: RESPIRATORY FAILURE
     Dosage: 1000 MG
     Route: 042
     Dates: start: 20080907, end: 20080909
  5. PREDNISOLONE SODIUM SUCCINATE INJ [Concomitant]
     Indication: RESPIRATORY FAILURE
     Dosage: 60 MG
     Route: 042
     Dates: start: 20080910, end: 20080912
  6. SIVELESTAT SODIUM HYDRATE [Concomitant]
     Indication: RESPIRATORY FAILURE
     Dosage: 250 MG
     Route: 042
     Dates: start: 20080911, end: 20080911
  7. ITOROL [Concomitant]
     Indication: MYOCARDIAL ISCHAEMIA
     Dosage: 40 MG
     Route: 048
     Dates: end: 20080907
  8. BUFFERIN [Concomitant]
     Indication: CEREBRAL INFARCTION
     Dosage: 81 MG
     Route: 048
     Dates: end: 20080907
  9. AMLODIPINE BESYLATE [Concomitant]
     Indication: HYPERTENSION
     Dosage: 5 MG
     Route: 048
     Dates: end: 20080907
  10. LANIRAPID [Concomitant]
     Indication: CARDIAC FAILURE
     Dosage: 0.1 MG
     Route: 048
     Dates: end: 20080907
  11. MARZULENE S [Concomitant]
     Indication: GASTRITIS
     Dosage: 1.5 GM
     Route: 048
     Dates: end: 20080907
  12. SM POWDER [Concomitant]
     Indication: GASTRITIS
     Dosage: 3.9 GM
     Route: 048
     Dates: end: 20080907
  13. GLYCYRON [Concomitant]
     Indication: LIVER DISORDER
     Dosage: 3DF
     Route: 048
     Dates: end: 20080907
  14. URINORM [Concomitant]
     Indication: HYPERURICAEMIA
     Dosage: 50 MG
     Route: 048
     Dates: end: 20080907
  15. ALDACTONE [Concomitant]
     Indication: CARDIAC FAILURE
     Dosage: 25 MG
     Route: 048
     Dates: end: 20080907
  16. UNASYN [Concomitant]
     Indication: PNEUMONIA
     Route: 042
     Dates: start: 20080904

REACTIONS (5)
  - BACTERIA SPUTUM IDENTIFIED [None]
  - CHEST X-RAY ABNORMAL [None]
  - DEPRESSED LEVEL OF CONSCIOUSNESS [None]
  - MULTI-ORGAN FAILURE [None]
  - RESPIRATORY FAILURE [None]
